FAERS Safety Report 19702297 (Version 1)
Quarter: 2021Q3

REPORT INFORMATION
  Report Type: Spontaneous
  Country: CN (occurrence: CN)
  Receive Date: 20210814
  Receipt Date: 20210814
  Transmission Date: 20211014
  Serious: Yes (Other)
  Sender: FDA-Public Use
  Company Number: NVSC2021CN178648

PATIENT

DRUGS (1)
  1. COSENTYX [Suspect]
     Active Substance: SECUKINUMAB
     Indication: PSORIASIS
     Dosage: 300 MG/M
     Route: 058
     Dates: start: 202103, end: 20210804

REACTIONS (2)
  - Antinuclear antibody increased [Unknown]
  - Tuberculosis [Not Recovered/Not Resolved]
